FAERS Safety Report 4551198-6 (Version None)
Quarter: 2005Q1

REPORT INFORMATION
  Report Type: 
  Country: None (occurrence: None)
  Receive Date: 20050110
  Receipt Date: 20040521
  Transmission Date: 20050727
  Serious: Yes (Hospitalization, Other)
  Sender: FDA-Public Use
  Company Number: 2002-11-2673

PATIENT
  Age: 47 Year
  Sex: Female
  Weight: 124.7392 kg

DRUGS (4)
  1. CORICIDIN D SRT [Suspect]
     Indication: NASOPHARYNGITIS
     Dosage: 2 TAB Q 4 H ORAL
     Route: 048
     Dates: start: 20000825, end: 20000827
  2. DIMETAPP [Suspect]
     Indication: NASOPHARYNGITIS
     Dosage: 1 TAB Q 12H ORAL
     Route: 048
     Dates: start: 20000823, end: 20000825
  3. METABOLIFE [Concomitant]
  4. ORTHO-NOVUM [Concomitant]

REACTIONS (4)
  - INTRAVENTRICULAR HAEMORRHAGE [None]
  - LOSS OF CONSCIOUSNESS [None]
  - SEPSIS [None]
  - SUBARACHNOID HAEMORRHAGE [None]
